FAERS Safety Report 5801875-1 (Version None)
Quarter: 2008Q3

REPORT INFORMATION
  Report Type: 
  Country: None (occurrence: None)
  Receive Date: 20080702
  Receipt Date: 20080610
  Transmission Date: 20090109
  Serious: Yes (Hospitalization)
  Sender: FDA-Public Use
  Company Number: 08H-167-0314483-00

PATIENT
  Age: 12 Year
  Sex: Male
  Weight: 56 kg

DRUGS (5)
  1. ONDANSETRON [Suspect]
     Indication: PROCEDURAL NAUSEA
     Dates: start: 20080501, end: 20080509
  2. PROPOFOL INJECTABLE EMULSION 1% (10 MG/ML) [Concomitant]
  3. FLUTICASONE PROPIONATE [Concomitant]
  4. ISOFLURANE [Concomitant]
  5. LIDOCAINE [Concomitant]

REACTIONS (2)
  - CHOREA [None]
  - MYOCLONUS [None]
